FAERS Safety Report 4457814-1 (Version None)
Quarter: 2004Q3

REPORT INFORMATION
  Report Type: 
  Country: None (occurrence: None)
  Receive Date: 20040922
  Receipt Date: 20040908
  Transmission Date: 20050211
  Serious: Yes (Death, Life-Threatening, Other)
  Sender: FDA-Public Use
  Company Number: 2004060681

PATIENT
  Age: 21 Year
  Sex: Male

DRUGS (3)
  1. NIFEDIPINE [Suspect]
     Indication: ILL-DEFINED DISORDER
     Dosage: 60 MG (5 MG, 1 IN 1 D), INTRAVENOUS
     Route: 042
     Dates: start: 19901001, end: 19901001
  2. BARBITURATES (BARBITURATES) [Suspect]
     Indication: ILL-DEFINED DISORDER
     Dates: end: 19901001
  3. TEMAZEPAM [Suspect]
     Indication: ILL-DEFINED DISORDER
     Dosage: 10 MG, 1 IN 1 D
     Dates: start: 19901001, end: 19901001

REACTIONS (15)
  - ANTI-HBC ANTIBODY POSITIVE [None]
  - ANTI-HBS ANTIBODY POSITIVE [None]
  - CIRCULATORY COLLAPSE [None]
  - GASTRIC DISORDER [None]
  - GASTRIC HAEMORRHAGE [None]
  - HAEMATOMA [None]
  - INFLAMMATION [None]
  - INTENTIONAL MISUSE [None]
  - LIVER DISORDER [None]
  - MEDICATION ERROR [None]
  - OVERDOSE [None]
  - PULMONARY CONGESTION [None]
  - PULMONARY OEDEMA [None]
  - SKIN LACERATION [None]
  - SYNCOPE [None]
